FAERS Safety Report 6390962-8 (Version None)
Quarter: 2009Q4

REPORT INFORMATION
  Report Type: 
  Country: None (occurrence: None)
  Receive Date: 20091001
  Receipt Date: 20090825
  Transmission Date: 20100525
  Serious: Yes (Hospitalization)
  Sender: FDA-Public Use
  Company Number: 207192USA

PATIENT
  Sex: Female

DRUGS (3)
  1. TOPIRAMATE [Suspect]
     Indication: NEURALGIA
     Dosage: 150 MG (50 MG, 3 IN 1 D),ORAL
     Route: 048
     Dates: start: 20090525
  2. OXYCODONE HCL [Concomitant]
  3. OXYCET [Concomitant]

REACTIONS (1)
  - VISION BLURRED [None]
